FAERS Safety Report 5259038-7 (Version None)
Quarter: 2007Q1

REPORT INFORMATION
  Report Type: 
  Country: None (occurrence: None)
  Receive Date: 20070305
  Receipt Date: 20070226
  Transmission Date: 20070707
  Serious: Yes (Hospitalization, Other)
  Sender: FDA-Public Use
  Company Number: 163-C5013-07010948

PATIENT
  Age: 76 Year
  Sex: Male
  Weight: 60 kg

DRUGS (18)
  1. CC-5013 (LENALIDOMIDE) (CAPSULES) [Suspect]
     Indication: MULTIPLE MYELOMA
     Dosage: 10 MG, DAILY X 21 DAYS, ORAL
     Route: 048
     Dates: start: 20030922, end: 20061215
  2. CHOLESTYRAMINE (COLESTYRAMINE) (POWDER) [Concomitant]
  3. PREDNISONE (PREDNISONE) (20 MILLIGRAM, TABLETS) [Concomitant]
  4. FOLIC ACID (FOLIC ACID) (1 MILLIGRAM, TABLETS) [Concomitant]
  5. COMBIVENT/ACTUATION AEROSOL INHALER (COMBIVENT) [Concomitant]
  6. SINEMET (SINEMET) (TABLETS) [Concomitant]
  7. MEGACE (MEGESTROL ACETATE) (40 MILLIGRAM/MILLILITERS, SUSPENSION) [Concomitant]
  8. PROPRANOLOL (PROPRANOLOL) (20 MILLIGRAM, TABLETS) [Concomitant]
  9. ALTACE (RAMIPRIL) (2.5 MILLIGRAM, CAPSULES) [Concomitant]
  10. OXYCONTIN (OXYCODONE HYDROCHLORIDE) (10 MILLIGRAM, TABLETS) [Concomitant]
  11. GAMMAGARD S/D (IMMUNOGLOBULIN HUMAN NORMAL) (2.5 GRAM, SOLUTION) [Concomitant]
  12. AREDIA [Concomitant]
  13. LACTAID EXTRA (STRENGTH (TILACTASE) (TABLETS) [Concomitant]
  14. VITAMIN B12 [Concomitant]
  15. LANOXIN (DIGOXIN) (125 MICROGRAM, TABLETS) [Concomitant]
  16. PROCRIT [Concomitant]
  17. ASA LOW DOSE (ACETYLSALICYLIC ACID) (81 MILLIGRAM, TABLETS) [Concomitant]
  18. ZANTAC (RANITIDINE HYDROCHLORIDE) (150 MILLIGRAM, TABLETS) [Concomitant]

REACTIONS (7)
  - CEREBRAL ISCHAEMIA [None]
  - CEREBROVASCULAR ACCIDENT [None]
  - OPHTHALMOPLEGIA [None]
  - PULMONARY FIBROSIS [None]
  - RESPIRATORY SYNCYTIAL VIRUS INFECTION [None]
  - SEPSIS [None]
  - STAPHYLOCOCCAL INFECTION [None]
